FAERS Safety Report 14330905 (Version 2)
Quarter: 2018Q1

REPORT INFORMATION
  Report Type: Spontaneous
  Country: US (occurrence: US)
  Receive Date: 20171228
  Receipt Date: 20180328
  Transmission Date: 20180509
  Serious: No
  Sender: FDA-Public Use
  Company Number: US-TEVA-2017-US-835945

PATIENT
  Sex: Female

DRUGS (4)
  1. PERCOCET [Concomitant]
     Active Substance: ACETAMINOPHEN\OXYCODONE HYDROCHLORIDE
     Route: 065
  2. FENTANYL. [Suspect]
     Active Substance: FENTANYL
     Indication: PAIN
  3. FENTANYL. [Suspect]
     Active Substance: FENTANYL
  4. KLONOPIN [Concomitant]
     Active Substance: CLONAZEPAM
     Indication: SEIZURE

REACTIONS (2)
  - Therapeutic response shortened [Not Recovered/Not Resolved]
  - Withdrawal syndrome [Unknown]
